FAERS Safety Report 15589608 (Version 2)
Quarter: 2020Q3

REPORT INFORMATION
  Report Type: Report from Study
  Country: US (occurrence: US)
  Receive Date: 20181106
  Receipt Date: 20181114
  Transmission Date: 20201105
  Serious: Yes (Other)
  Sender: FDA-Public Use
  Company Number: US-ROCHE-1829398

PATIENT
  Age: 58 Year
  Sex: Female
  Weight: 71.7 kg

DRUGS (10)
  1. OXYCODONE [Concomitant]
     Active Substance: OXYCODONE
     Route: 065
     Dates: start: 20160414
  2. TRASTUZUMAB EMTANSINE [Suspect]
     Active Substance: ADO-TRASTUZUMAB EMTANSINE
     Route: 042
     Dates: start: 20160526
  3. DURICEF [Concomitant]
     Active Substance: CEFADROXIL
     Route: 065
     Dates: start: 20160427
  4. FLEXERIL [Concomitant]
     Active Substance: CYCLOBENZAPRINE HYDROCHLORIDE
     Route: 065
     Dates: start: 20160819
  5. TASELISIB. [Suspect]
     Active Substance: TASELISIB
     Route: 048
     Dates: start: 20160526, end: 20160728
  6. ATIVAN [Concomitant]
     Active Substance: LORAZEPAM
     Route: 065
     Dates: start: 20160623
  7. COLACE [Concomitant]
     Active Substance: DOCUSATE SODIUM
     Route: 065
     Dates: start: 20160415
  8. FLONASE [Concomitant]
     Active Substance: FLUTICASONE PROPIONATE
     Route: 065
     Dates: start: 20150320
  9. ZOFRAN [Concomitant]
     Active Substance: ONDANSETRON HYDROCHLORIDE
     Route: 065
     Dates: start: 20160526
  10. ADVIL [Concomitant]
     Active Substance: IBUPROFEN
     Route: 065
     Dates: start: 20150522

REACTIONS (2)
  - Hyperglycaemia [Unknown]
  - Erythema multiforme [Recovered/Resolved]

NARRATIVE: CASE EVENT DATE: 20160728
